FAERS Safety Report 9377393 (Version 2)
Quarter: 2013Q3

REPORT INFORMATION
  Report Type: Report from Study
  Country: FR (occurrence: FR)
  Receive Date: 20130701
  Receipt Date: 20130821
  Transmission Date: 20140515
  Serious: Yes (Other)
  Sender: FDA-Public Use
  Company Number: PHHO2013FR006586

PATIENT
  Sex: Female

DRUGS (15)
  1. ZOLEDRONATE [Suspect]
     Dosage: 1.55 MG, UNK
     Route: 042
     Dates: start: 20121022, end: 20121022
  2. MTX [Suspect]
     Dosage: 12.6 G, UNK
     Route: 065
     Dates: start: 20121018, end: 20130409
  3. MTX [Suspect]
     Dosage: UNK
  4. IFOSFAMIDE [Concomitant]
     Dosage: 13.2 G, UNK
     Route: 048
     Dates: start: 20121113, end: 20121221
  5. IFOSFAMIDE [Concomitant]
     Dosage: 13.08 UNK, UNK
     Route: 048
     Dates: start: 20130307, end: 20130310
  6. IFOSFAMIDE [Concomitant]
     Dosage: 3.27 UNK, UNK
     Route: 048
     Dates: start: 20130310
  7. IFOSFAMIDE [Concomitant]
     Dosage: UNK UKN, UNK
     Dates: start: 20130510
  8. VP-16 [Concomitant]
     Dosage: 3.28 MG, UNK
     Route: 065
     Dates: start: 20121115, end: 20130307
  9. VP-16 [Concomitant]
     Dosage: UNK UKN, UNK
     Dates: start: 20130310
  10. CALCIUM [Concomitant]
     Indication: PROPHYLAXIS
     Dosage: UNK UKN, UNK
     Route: 048
     Dates: start: 20130409
  11. UVESTEROL D [Concomitant]
     Indication: PROPHYLAXIS
     Dosage: UNK UKN, UNK
     Route: 048
     Dates: start: 20130409
  12. UVESTEROL D [Concomitant]
     Indication: PROPHYLAXIS
  13. LARGACTIL [Concomitant]
     Indication: VOMITING
     Dosage: UNK UKN, UNK
     Route: 042
     Dates: start: 20130409
  14. VOGALENE [Concomitant]
     Indication: VOMITING
     Dosage: UNK UKN, UNK
     Route: 042
     Dates: start: 20130409
  15. ZOPHREN [Concomitant]
     Indication: VOMITING
     Dosage: UNK UKN, UNK
     Route: 042
     Dates: start: 20130409

REACTIONS (4)
  - Psoriasis [Not Recovered/Not Resolved]
  - Prurigo [Not Recovered/Not Resolved]
  - Rash [Not Recovered/Not Resolved]
  - Blister [Not Recovered/Not Resolved]
